FAERS Safety Report 7490371-4 (Version None)
Quarter: 2011Q2

REPORT INFORMATION
  Report Type: 
  Country: None (occurrence: None)
  Receive Date: 20110519
  Receipt Date: 20110418
  Transmission Date: 20111010
  Serious: Yes (Other)
  Sender: FDA-Public Use
  Company Number: US-BAYER-201028655NA

PATIENT
  Age: 28 Year
  Sex: Female
  Weight: 99.773 kg

DRUGS (6)
  1. HYDROCHLORIDE [Concomitant]
  2. NAPROXEN [Concomitant]
  3. YASMIN [Suspect]
     Indication: PRODUCT USED FOR UNKNOWN INDICATION
     Route: 048
     Dates: start: 20061001, end: 20071101
  4. VICODIN [Concomitant]
  5. RANITIDINE [Concomitant]
  6. NSAID'S [Concomitant]

REACTIONS (2)
  - CHOLECYSTITIS CHRONIC [None]
  - GALLBLADDER DISORDER [None]
